FAERS Safety Report 25042017 (Version 1)
Quarter: 2025Q1

REPORT INFORMATION
  Report Type: Spontaneous
  Country: US (occurrence: US)
  Receive Date: 20250305
  Receipt Date: 20250305
  Transmission Date: 20250409
  Serious: No
  Sender: JOHNSON AND JOHNSON
  Company Number: US-JNJFOC-20250172541

PATIENT
  Age: 5 Decade
  Sex: Female

DRUGS (1)
  1. TOPAMAX [Suspect]
     Active Substance: TOPIRAMATE
     Indication: Trigeminal neuralgia
     Route: 048
     Dates: start: 2020

REACTIONS (2)
  - Fatigue [Unknown]
  - Off label use [Unknown]
